FAERS Safety Report 18140154 (Version 1)
Quarter: 2020Q3

REPORT INFORMATION
  Report Type: Spontaneous
  Country: US (occurrence: US)
  Receive Date: 20200812
  Receipt Date: 20200812
  Transmission Date: 20201103
  Serious: Yes (Other)
  Sender: FDA-Public Use
  Company Number: US-ABBVIE-20K-163-3387612-00

PATIENT
  Age: 10 Year
  Sex: Female
  Weight: 46.6 kg

DRUGS (1)
  1. LUPRON DEPOT?PED [Suspect]
     Active Substance: LEUPROLIDE ACETATE
     Indication: PRECOCIOUS PUBERTY
     Route: 030
     Dates: start: 20190926, end: 20200429

REACTIONS (8)
  - Injection site pain [Recovered/Resolved]
  - Injection site swelling [Recovering/Resolving]
  - Drug hypersensitivity [Unknown]
  - Injection site infection [Unknown]
  - Injection site cellulitis [Recovered/Resolved]
  - Injection site erythema [Recovered/Resolved]
  - Injection site scar [Not Recovered/Not Resolved]
  - Injection site pustule [Unknown]

NARRATIVE: CASE EVENT DATE: 202002
